FAERS Safety Report 17239395 (Version 3)
Quarter: 2020Q3

REPORT INFORMATION
  Report Type: Report from Study
  Country: US (occurrence: US)
  Receive Date: 20200106
  Receipt Date: 20200803
  Transmission Date: 20201102
  Serious: No
  Sender: FDA-Public Use
  Company Number: NVSC2020US001490

PATIENT
  Age: 40 Year
  Sex: Male

DRUGS (2)
  1. COSENTYX [Suspect]
     Active Substance: SECUKINUMAB
     Indication: PSORIASIS
     Dosage: 300 MG (INJECT 300 MG (2 PENS) AT WEEK 4,THEN 300 MG (2 PENS) EVERY 4 WEEKS THEREAFTER
     Route: 058
  2. COSENTYX [Suspect]
     Active Substance: SECUKINUMAB
     Indication: PSORIATIC ARTHROPATHY

REACTIONS (4)
  - Headache [Unknown]
  - Lacrimation increased [Unknown]
  - Lethargy [Unknown]
  - Sneezing [Unknown]
